FAERS Safety Report 4364601-1 (Version None)
Quarter: 2004Q2

REPORT INFORMATION
  Report Type: 
  Country: None (occurrence: None)
  Receive Date: 20040521
  Receipt Date: 20040510
  Transmission Date: 20050107
  Serious: Yes (Other)
  Sender: FDA-Public Use
  Company Number: 2004025199

PATIENT
  Age: 68 Year
  Sex: Male
  Weight: 74.8435 kg

DRUGS (3)
  1. VIAGRA [Suspect]
     Indication: ERECTILE DYSFUNCTION
     Dosage: 100 MG, ORAL
     Route: 048
  2. VARDENAFIL HYDROCHLORIDE (VARDENAFIL HYDROCHLORIDE) [Suspect]
     Indication: ERECTILE DYSFUNCTION
  3. ANTIHYPERSENSITIVES (ANTIHYPERSENSITIVES) [Concomitant]

REACTIONS (4)
  - DRUG INEFFECTIVE [None]
  - HEADACHE [None]
  - NASAL CONGESTION [None]
  - PROSTATE CANCER [None]
